FAERS Safety Report 9344029 (Version 1)
Quarter: 2013Q2

REPORT INFORMATION
  Report Type: Spontaneous
  Country: JP (occurrence: JP)
  Receive Date: 20130612
  Receipt Date: 20130612
  Transmission Date: 20140414
  Serious: Yes (Hospitalization)
  Sender: FDA-Public Use
  Company Number: JP-BRISTOL-MYERS SQUIBB COMPANY-18905851

PATIENT
  Age: 32 Year
  Sex: Male
  Weight: 68 kg

DRUGS (4)
  1. ABILIFY TABS [Suspect]
     Indication: SCHIZOPHRENIA
     Route: 048
     Dates: end: 20130409
  2. SEROQUEL [Suspect]
     Indication: INSOMNIA
     Route: 048
     Dates: end: 20130409
  3. DEPROMEL [Concomitant]
     Dosage: TAB?PREV-100MG/D?PRES-300MG/D
     Route: 048
     Dates: end: 20130409
  4. ETIZOLAM [Concomitant]
     Dosage: TABS
     Dates: start: 20130409

REACTIONS (2)
  - Neuroleptic malignant syndrome [Recovered/Resolved]
  - Overdose [Unknown]
